FAERS Safety Report 20882185 (Version 1)
Quarter: 2022Q2

REPORT INFORMATION
  Report Type: Spontaneous
  Country: CN (occurrence: None)
  Receive Date: 20220527
  Receipt Date: 20220527
  Transmission Date: 20220721
  Serious: Yes (Other)
  Sender: FDA-Public Use
  Company Number: CN-ROCHE-3102652

PATIENT
  Age: 47 Year
  Sex: Female
  Weight: 48 kg

DRUGS (12)
  1. AVASTIN [Suspect]
     Active Substance: BEVACIZUMAB
     Indication: Rectal adenocarcinoma
     Route: 042
  2. AVASTIN [Suspect]
     Active Substance: BEVACIZUMAB
     Indication: Metastasis
  3. XELODA [Suspect]
     Active Substance: CAPECITABINE
     Indication: Rectal adenocarcinoma
     Route: 048
  4. XELODA [Suspect]
     Active Substance: CAPECITABINE
     Indication: Metastasis
  5. OXALIPLATIN [Concomitant]
     Active Substance: OXALIPLATIN
  6. IRINOTECAN [Concomitant]
     Active Substance: IRINOTECAN
     Dates: start: 20211013
  7. IRINOTECAN [Concomitant]
     Active Substance: IRINOTECAN
     Dates: start: 20211027
  8. GIMERACIL\OTERACIL\TEGAFUR [Concomitant]
     Active Substance: GIMERACIL\OTERACIL\TEGAFUR
     Dates: start: 20211013
  9. GIMERACIL\OTERACIL\TEGAFUR [Concomitant]
     Active Substance: GIMERACIL\OTERACIL\TEGAFUR
     Dates: start: 20211027
  10. CETUXIMAB [Concomitant]
     Active Substance: CETUXIMAB
     Dates: start: 20211027
  11. REGORAFENIB [Concomitant]
     Active Substance: REGORAFENIB
     Dates: start: 20220114, end: 20220214
  12. SINTILIMAB [Concomitant]
     Active Substance: SINTILIMAB

REACTIONS (5)
  - Platelet count decreased [Unknown]
  - Asthenia [Unknown]
  - White blood cell count decreased [Unknown]
  - Rash [Unknown]
  - Urinary retention [Unknown]
